FAERS Safety Report 6502617-7 (Version None)
Quarter: 2009Q4

REPORT INFORMATION
  Report Type: 
  Country: None (occurrence: None)
  Receive Date: 20091127
  Receipt Date: 20090126
  Transmission Date: 20100525
  Serious: Yes (Disabling)
  Sender: FDA-Public Use
  Company Number: WAES 0901USA03855

PATIENT
  Age: 58 Year
  Sex: Female

DRUGS (1)
  1. FOSAMAX [Suspect]
     Dosage: 70 MG/PO
     Route: 048
     Dates: start: 20030101, end: 20070201

REACTIONS (1)
  - OSTEONECROSIS [None]
